FAERS Safety Report 8597469-8 (Version None)
Quarter: 2012Q3

REPORT INFORMATION
  Report Type: 
  Country: None (occurrence: None)
  Receive Date: 20120816
  Receipt Date: 20120814
  Transmission Date: 20120928
  Serious: Yes (Other)
  Sender: FDA-Public Use
  Company Number: US-JNJFOC-20120712476

PATIENT

DRUGS (11)
  1. DOXORUBICIN HCL [Suspect]
     Indication: LYMPHOMA
     Dosage: ADMINISTERED OVER 3 TO 5 MINUTES
     Route: 042
  2. VINCRISTINE [Suspect]
     Indication: LYMPHOMA
     Dosage: DAY 1-5, CAPPED 1.5 MG
     Route: 048
  3. ONDANSETRON [Concomitant]
     Indication: NAUSEA
     Route: 042
  4. DIPHENHYDRAMINE HYDROCHLORIDE [Concomitant]
     Indication: PROPHYLAXIS
     Route: 048
  5. VELCADE [Suspect]
     Indication: LYMPHOMA
     Dosage: ON DAY 1
     Route: 042
  6. DOXORUBICIN HCL [Suspect]
     Dosage: ADMINISTERED OVER 3 TO 5 MINUTES
     Route: 042
  7. RITUXIMAB [Suspect]
     Indication: LYMPHOMA
     Dosage: ON DAY 1
     Route: 065
  8. PREDNISONE TAB [Concomitant]
     Indication: NAUSEA
     Route: 048
  9. CYCLOPHOSPHAMIDE [Suspect]
     Indication: LYMPHOMA
     Dosage: ON DAY 1
     Route: 042
  10. PREDNISONE TAB [Suspect]
     Indication: LYMPHOMA
     Dosage: DAY 1-5
     Route: 048
  11. ACETAMINOPHEN [Concomitant]
     Indication: PROPHYLAXIS
     Route: 048

REACTIONS (1)
  - MOTOR DYSFUNCTION [None]
